FAERS Safety Report 6537476-X (Version None)
Quarter: 2010Q1

REPORT INFORMATION
  Report Type: 
  Country: None (occurrence: None)
  Receive Date: 20100114
  Receipt Date: 20100109
  Transmission Date: 20100710
  Serious: Yes (Hospitalization, Other)
  Sender: FDA-Public Use
  Company Number: PHEH2010US00547

PATIENT
  Sex: Female

DRUGS (5)
  1. FEMARA [Suspect]
     Dosage: 2.5 MG, QD
     Route: 048
  2. ATENOLOL [Concomitant]
  3. PLAVIX [Concomitant]
  4. NITROGLYCERIN [Concomitant]
  5. IMDUR [Concomitant]

REACTIONS (2)
  - ARTERIOSCLEROSIS [None]
  - CHEST PAIN [None]
